FAERS Safety Report 5741170-2 (Version None)
Quarter: 2008Q2

REPORT INFORMATION
  Report Type: 
  Country: None (occurrence: None)
  Receive Date: 20080514
  Receipt Date: 20080428
  Transmission Date: 20081010
  Serious: No
  Sender: FDA-Public Use
  Company Number: 002#2#2008-00303

PATIENT
  Age: 55 Year
  Sex: Male
  Weight: 96 kg

DRUGS (11)
  1. NEUPRO [Suspect]
     Indication: PARKINSON'S DISEASE
     Dosage: 2MG/24H,1 IN 1 D,TRANSDERMAL;  4MG/24H,1 IN 1 D,TRANSDERMAL;  6MG/24H,1 IN 1 D,TRANSDERMAL
     Route: 062
     Dates: start: 20071001, end: 20071101
  2. NEUPRO [Suspect]
     Indication: PARKINSON'S DISEASE
     Dosage: 2MG/24H,1 IN 1 D,TRANSDERMAL;  4MG/24H,1 IN 1 D,TRANSDERMAL;  6MG/24H,1 IN 1 D,TRANSDERMAL
     Route: 062
     Dates: start: 20071101, end: 20071201
  3. NEUPRO [Suspect]
     Indication: PARKINSON'S DISEASE
     Dosage: 2MG/24H,1 IN 1 D,TRANSDERMAL;  4MG/24H,1 IN 1 D,TRANSDERMAL;  6MG/24H,1 IN 1 D,TRANSDERMAL
     Route: 062
     Dates: start: 20071201
  4. METFORMIN HCL [Concomitant]
  5. METOPROLOL TARTRATE [Concomitant]
  6. HYDROCHLOROTHIAZDE [Concomitant]
  7. GLIPIZIDE [Concomitant]
  8. ENALAPRIL MALEATE [Concomitant]
  9. DETROL LA [Concomitant]
  10. EFFEXOR XR [Concomitant]
  11. ASPIRIN [Concomitant]

REACTIONS (6)
  - APPLICATION SITE IRRITATION [None]
  - BALANCE DISORDER [None]
  - DRUG EFFECT DECREASED [None]
  - GAIT DISTURBANCE [None]
  - PHARMACEUTICAL PRODUCT COMPLAINT [None]
  - SKIN BURNING SENSATION [None]
